FAERS Safety Report 4305148-8 (Version None)
Quarter: 2004Q1

REPORT INFORMATION
  Report Type: 
  Country: None (occurrence: None)
  Receive Date: 20040225
  Receipt Date: 20040225
  Transmission Date: 20041129
  Serious: Yes (Hospitalization)
  Sender: FDA-Public Use
  Company Number: None

PATIENT
  Age: 40 Year
  Sex: Male

DRUGS (6)
  1. FLUCONAZOLE [Suspect]
     Indication: RETINITIS
     Dosage: 400 MG IV QD
     Route: 042
  2. LINEZOLID [Concomitant]
  3. LEVOTHYROXINE SODIUM [Concomitant]
  4. RANITIDINE [Concomitant]
  5. PHENERGAN [Concomitant]
  6. TPN [Concomitant]

REACTIONS (5)
  - BLOOD MAGNESIUM INCREASED [None]
  - ELECTROCARDIOGRAM QT PROLONGED [None]
  - HYPERNATRAEMIA [None]
  - NAUSEA [None]
  - VENTRICULAR TACHYCARDIA [None]
